FAERS Safety Report 12243644 (Version 2)
Quarter: 2016Q3

REPORT INFORMATION
  Report Type: Spontaneous
  Country: JP (occurrence: JP)
  Receive Date: 20160406
  Receipt Date: 20160708
  Transmission Date: 20161109
  Serious: Yes (Other)
  Sender: FDA-Public Use
  Company Number: JP-SEATTLE GENETICS-2015SGN01347

PATIENT

DRUGS (1)
  1. ADCETRIS [Suspect]
     Active Substance: BRENTUXIMAB VEDOTIN
     Indication: HODGKIN^S DISEASE
     Dosage: 1.8 MG/KG, Q21D
     Route: 041
     Dates: start: 20150414

REACTIONS (3)
  - Decreased appetite [Recovering/Resolving]
  - Neuropathy peripheral [Recovering/Resolving]
  - Skin disorder [Not Recovered/Not Resolved]

NARRATIVE: CASE EVENT DATE: 20150414
